FAERS Safety Report 8208761-0 (Version None)
Quarter: 2012Q1

REPORT INFORMATION
  Report Type: 
  Country: None (occurrence: None)
  Receive Date: 20120314
  Receipt Date: 20120307
  Transmission Date: 20120608
  Serious: Yes (Other)
  Sender: FDA-Public Use
  Company Number: US-ROCHE-1019497

PATIENT
  Sex: Female
  Weight: 77.18 kg

DRUGS (1)
  1. ACCUTANE [Suspect]
     Indication: ACNE
     Route: 065
     Dates: start: 20001108, end: 20010615

REACTIONS (11)
  - COLITIS ULCERATIVE [None]
  - CHAPPED LIPS [None]
  - ANAL FISSURE [None]
  - DRY SKIN [None]
  - RECTAL ABSCESS [None]
  - IRRITABLE BOWEL SYNDROME [None]
  - STRESS [None]
  - ANAL ABSCESS [None]
  - DEPRESSION [None]
  - INFLAMMATORY BOWEL DISEASE [None]
  - LIP DRY [None]
